FAERS Safety Report 20514057 (Version 2)
Quarter: 2022Q4

REPORT INFORMATION
  Report Type: Spontaneous
  Country: US (occurrence: US)
  Receive Date: 20220224
  Receipt Date: 20221207
  Transmission Date: 20230113
  Serious: Yes (Other)
  Sender: FDA-Public Use
  Company Number: US-AMNEAL PHARMACEUTICALS-2021-AMRX-03503

PATIENT
  Sex: Female

DRUGS (2)
  1. RYTARY [Suspect]
     Active Substance: CARBIDOPA\LEVODOPA
     Indication: Parkinson^s disease
     Dosage: 3 CAPSULES, 5X/DAY
     Route: 048
     Dates: end: 20210813
  2. RYTARY [Suspect]
     Active Substance: CARBIDOPA\LEVODOPA
     Dosage: 3 CAPSULES (36.25/145MG), 5X/DAY
     Route: 048

REACTIONS (6)
  - Rib fracture [Unknown]
  - Fall [Unknown]
  - Nasopharyngitis [Unknown]
  - Memory impairment [Unknown]
  - Gait disturbance [Unknown]
  - Abdominal discomfort [Unknown]
